FAERS Safety Report 15298126 (Version 2)
Quarter: 2018Q3

REPORT INFORMATION
  Report Type: Spontaneous
  Country: US (occurrence: US)
  Receive Date: 20180820
  Receipt Date: 20180923
  Transmission Date: 20181010
  Serious: Yes (Hospitalization, Other)
  Sender: FDA-Public Use
  Company Number: US-GLAXOSMITHKLINE-US2018GSK148864

PATIENT
  Sex: Female

DRUGS (6)
  1. FLOLAN [Suspect]
     Active Substance: EPOPROSTENOL SODIUM
     Indication: PULMONARY ARTERIAL HYPERTENSION
     Dosage: 27.3 NG/KG/MIN CONTINUOUS
     Route: 042
  2. FLOLAN [Suspect]
     Active Substance: EPOPROSTENOL SODIUM
     Indication: PULMONARY ARTERIAL HYPERTENSION
     Dosage: 27.7 DF, CO
     Route: 042
     Dates: start: 20110923
  3. OPSUMIT [Concomitant]
     Active Substance: MACITENTAN
  4. FLOLAN DILUENT PH 12 [Suspect]
     Active Substance: GLYCINE\MANNITOL\SODIUM CHLORIDE
     Indication: PULMONARY ARTERIAL HYPERTENSION
     Dosage: UNK
  5. ADCIRCA [Concomitant]
     Active Substance: TADALAFIL
  6. FLOLAN DILUENT PH 12 [Suspect]
     Active Substance: GLYCINE\MANNITOL\SODIUM CHLORIDE
     Indication: PULMONARY ARTERIAL HYPERTENSION
     Dosage: UNK
     Dates: start: 20170207

REACTIONS (6)
  - Device related infection [Unknown]
  - Skin infection [Recovering/Resolving]
  - Tooth infection [Not Recovered/Not Resolved]
  - Cholelithiasis [Unknown]
  - Rash pustular [Recovering/Resolving]
  - Catheter site infection [Unknown]
